FAERS Safety Report 5200457-2 (Version None)
Quarter: 2007Q1

REPORT INFORMATION
  Report Type: 
  Country: None (occurrence: None)
  Receive Date: 20070105
  Receipt Date: 20061127
  Transmission Date: 20070707
  Serious: Yes (Other)
  Sender: FDA-Public Use
  Company Number: US-MERCK-0611USA07502

PATIENT
  Age: 49 Year
  Sex: Male

DRUGS (9)
  1. PRINIVIL [Suspect]
     Indication: HYPERTENSION
     Route: 065
  2. FUROSEMIDE [Suspect]
     Route: 065
  3. SPIRONOLACTONE [Suspect]
     Route: 065
  4. HYDROCHLOROTHIAZIDE [Suspect]
     Route: 065
  5. ATENOLOL [Suspect]
     Route: 065
  6. LABETALOL HYDROCHLORIDE [Suspect]
     Route: 065
  7. CLONIDINE [Suspect]
     Route: 065
  8. CAPTOPRIL [Suspect]
     Route: 065
  9. MINOXIDIL [Suspect]
     Route: 065

REACTIONS (3)
  - CARDIAC FAILURE CONGESTIVE [None]
  - DRUG INEFFECTIVE [None]
  - LUPUS-LIKE SYNDROME [None]
